FAERS Safety Report 6620005-X (Version None)
Quarter: 2010Q1

REPORT INFORMATION
  Report Type: 
  Country: None (occurrence: None)
  Receive Date: 20100309
  Receipt Date: 20100303
  Transmission Date: 20100710
  Serious: Yes (Hospitalization)
  Sender: FDA-Public Use
  Company Number: NZ-SANOFI-AVENTIS-2010SA011860

PATIENT
  Sex: Male

DRUGS (2)
  1. LANTUS [Suspect]
  2. SOLOSTAR [Suspect]

REACTIONS (1)
  - DIABETIC KETOACIDOSIS [None]
